FAERS Safety Report 7765565-0 (Version None)
Quarter: 2011Q3

REPORT INFORMATION
  Report Type: 
  Country: None (occurrence: None)
  Receive Date: 20110921
  Receipt Date: 20110907
  Transmission Date: 20111222
  Serious: Yes (Hospitalization)
  Sender: FDA-Public Use
  Company Number: PHHO2009DE14697

PATIENT
  Sex: Male
  Weight: 81.8 kg

DRUGS (4)
  1. MYFORTIC [Suspect]
     Indication: RENAL TRANSPLANT
     Dosage: 720MG DAILY
     Route: 048
     Dates: start: 20090914
  2. NO TREATMENT RECEIVED [Suspect]
     Indication: RENAL TRANSPLANT
     Dosage: NO TREATMENT
  3. SANDIMMUNE [Suspect]
     Indication: RENAL TRANSPLANT
     Dosage: 200MG DAILY
     Route: 048
     Dates: start: 20090914
  4. PREDNISONE [Suspect]
     Indication: RENAL TRANSPLANT
     Dosage: 5 MG
     Route: 048
     Dates: start: 20090914

REACTIONS (9)
  - DRUG INEFFECTIVE [None]
  - LYMPHOCELE [None]
  - PNEUMONIA [None]
  - BLOOD CREATININE INCREASED [None]
  - RENAL FAILURE ACUTE [None]
  - URETERIC STENOSIS [None]
  - URINARY TRACT INFECTION [None]
  - CONCOMITANT DISEASE PROGRESSION [None]
  - COMPLICATIONS OF TRANSPLANTED KIDNEY [None]
